FAERS Safety Report 4889786-X (Version None)
Quarter: 2006Q1

REPORT INFORMATION
  Report Type: 
  Country: None (occurrence: None)
  Receive Date: 20060124
  Receipt Date: 20050727
  Transmission Date: 20060701
  Serious: Yes (Hospitalization, Disabling, Other)
  Sender: FDA-Public Use
  Company Number: US-MERCK-0507USA04251

PATIENT
  Age: 58 Year
  Sex: Female
  Weight: 105 kg

DRUGS (6)
  1. VIOXX [Suspect]
     Indication: ARTHRITIS
     Route: 048
     Dates: start: 20010731, end: 20031001
  2. VIOXX [Suspect]
     Indication: PAIN
     Route: 048
     Dates: start: 20010731, end: 20031001
  3. LOTREL [Concomitant]
     Route: 048
  4. PLAVIX [Concomitant]
     Route: 048
  5. NEXIUM [Concomitant]
     Route: 048
  6. WELLBUTRIN SR [Concomitant]
     Route: 048
     Dates: start: 20030601, end: 20030901

REACTIONS (5)
  - CAROTID ARTERY OCCLUSION [None]
  - CAROTID ARTERY STENOSIS [None]
  - CEREBROVASCULAR ACCIDENT [None]
  - TRANSIENT ISCHAEMIC ATTACK [None]
  - TRIGGER FINGER [None]
